FAERS Safety Report 12824993 (Version 1)
Quarter: 2016Q4

REPORT INFORMATION
  Report Type: Other
  Country: CA (occurrence: CA)
  Receive Date: 20161007
  Receipt Date: 20161007
  Transmission Date: 20170207
  Serious: Yes (Other)
  Sender: FDA-Public Use
  Company Number: CA-APOTEX-2016AP012718

PATIENT
  Age: 39 Year
  Sex: Female
  Weight: 53 kg

DRUGS (1)
  1. APO-TRAMADOL/ACET [Suspect]
     Active Substance: ACETAMINOPHEN\TRAMADOL HYDROCHLORIDE
     Indication: PAIN
     Dosage: 327.0 MG, QD
     Route: 048

REACTIONS (7)
  - Skin burning sensation [Recovered/Resolved]
  - Palpitations [Recovered/Resolved]
  - Dyspnoea [Recovered/Resolved]
  - Pruritus [Recovered/Resolved]
  - Seizure [Recovered/Resolved]
  - Middle insomnia [Recovered/Resolved]
  - Myoclonus [Recovered/Resolved]
